FAERS Safety Report 23808096 (Version 1)
Quarter: 2024Q2

REPORT INFORMATION
  Report Type: Spontaneous
  Country: HR (occurrence: HR)
  Receive Date: 20240502
  Receipt Date: 20240502
  Transmission Date: 20240716
  Serious: Yes (Other)
  Sender: FDA-Public Use
  Company Number: HR-ASTELLAS-2024US011662

PATIENT
  Sex: Male

DRUGS (19)
  1. METHYLPREDNISOLONE [Suspect]
     Active Substance: METHYLPREDNISOLONE
     Indication: Immunosuppression
     Dosage: 250 MG, UNKNOWN FREQ.( 2ND DAY)
     Route: 042
  2. METHYLPREDNISOLONE [Suspect]
     Active Substance: METHYLPREDNISOLONE
     Dosage: 500 MG, UNKNOWN FREQ.(1ST DAY)
     Route: 042
  3. METHYLPREDNISOLONE [Suspect]
     Active Substance: METHYLPREDNISOLONE
     Dosage: 125 MG, UNKNOWN FREQ.(3RD DAY)
     Route: 042
  4. BASILIXIMAB [Suspect]
     Active Substance: BASILIXIMAB
     Indication: Immunosuppression
     Dosage: UNK UNK, APPLIED ON THE 28TH POD (AFTER THE LAST PLASMAPHERESIS)
     Route: 042
  5. BASILIXIMAB [Suspect]
     Active Substance: BASILIXIMAB
     Dosage: 20 MG, (25TH POD, 46TH POD + 67TH POD)
     Route: 042
  6. BASILIXIMAB [Suspect]
     Active Substance: BASILIXIMAB
     Dosage: 20 MG, TWO HOURS BEFORE THE PROCEDURE AND ON THE 4TH DAY
     Route: 042
  7. AMPHOTERICIN B [Suspect]
     Active Substance: AMPHOTERICIN B
     Dosage: 10 MG/KG, UNKNOWN FREQ.
     Route: 042
  8. PROGRAF [Suspect]
     Active Substance: TACROLIMUS
     Indication: Immunosuppression
     Dosage: FREQ:.5 D;2 MG, TWICE DAILY (2MG + 2MG)
     Route: 048
  9. PROGRAF [Suspect]
     Active Substance: TACROLIMUS
     Dosage: UNK UNK, TWICE DAILY, (2X A DAY)
     Route: 048
  10. TACROLIMUS [Suspect]
     Active Substance: TACROLIMUS
     Indication: Organ transplant
     Dosage: 0.03-0.05 MG/KG PER DAY CONTINUOUS INFUSION
     Route: 065
  11. PREDNISOLONE [Concomitant]
     Active Substance: PREDNISOLONE
     Dosage: 20 MG, PER DAY, (WITH REDUCTION OVER 12 MONTHS)
     Route: 065
  12. URSODIOL [Concomitant]
     Active Substance: URSODIOL
     Dosage: 500 MG, ONCE DAILY, (250MG 2X1 TABLET)
     Route: 065
  13. PIPERACILLIN AND TAZOBACTAM [Concomitant]
     Active Substance: PIPERACILLIN SODIUM\TAZOBACTAM SODIUM
     Indication: Infection prophylaxis
     Dosage: UNK UNK, UNKNOWN FREQ.
     Route: 042
  14. PREGABALIN [Concomitant]
     Active Substance: PREGABALIN
     Dosage: 150 MG, (2X75MG) UNKNOWN FREQ.
     Route: 065
  15. GANCICLOVIR [Concomitant]
     Active Substance: GANCICLOVIR
     Indication: Infection prophylaxis
     Dosage: 1.25 MG/KG, UNKNOWN FREQ.
     Route: 042
  16. CASPOFUNGIN [Concomitant]
     Active Substance: CASPOFUNGIN
     Indication: Infection prophylaxis
     Dosage: 50 MG, UNKNOWN FREQ.
     Route: 042
  17. CASPOFUNGIN [Concomitant]
     Active Substance: CASPOFUNGIN
     Dosage: 70 MG, UNKNOWN FREQ.(THE FIRST DAY)
     Route: 042
  18. PANTOPRAZOLE [Concomitant]
     Active Substance: PANTOPRAZOLE
     Dosage: 40 MG, ONCE DAILY, (40MG 1X1 TABLET)
     Route: 065
  19. PREDNISONE [Concomitant]
     Active Substance: PREDNISONE
     Dosage: 10 MG, UNKNOWN FREQ.
     Route: 065

REACTIONS (14)
  - Complications of transplanted kidney [Unknown]
  - Mucormycosis [Unknown]
  - Toxicity to various agents [Unknown]
  - Epstein-Barr viraemia [Unknown]
  - Toxicity to various agents [Unknown]
  - Pain in extremity [Unknown]
  - Thrombophlebitis [Unknown]
  - Pyrexia [Unknown]
  - Peritoneal effluent abnormal [Unknown]
  - Infection [Unknown]
  - Abdominal pain [Unknown]
  - Abdominal distension [Unknown]
  - Transplantation complication [Unknown]
  - Off label use [Unknown]

NARRATIVE: CASE EVENT DATE: 20220831
